FAERS Safety Report 9548729 (Version 1)
Quarter: 2013Q2

REPORT INFORMATION
  Report Type: Spontaneous
  Country: US (occurrence: None)
  Receive Date: 20130627
  Receipt Date: 20130627
  Transmission Date: 20140414
  Serious: Yes (Other)
  Sender: FDA-Public Use
  Company Number: 1000044666

PATIENT
  Age: 70 Year
  Sex: Female

DRUGS (8)
  1. LINZESS [Suspect]
     Indication: CONSTIPATION
     Dosage: 145 MCG (145 MCG, 1 IN 1 D), ORAL
     Route: 048
     Dates: start: 20130412, end: 20130423
  2. PULMICORT (BUDESONIDE) [Concomitant]
  3. DUONEB (IPRATROPIUM, ALBUTEROL) [Concomitant]
  4. VITAMIN D [Concomitant]
  5. CALCIUM [Concomitant]
  6. MAGNESIUM [Concomitant]
  7. POTASSIUM [Concomitant]
  8. ZINC [Concomitant]

REACTIONS (10)
  - Alopecia [None]
  - Nausea [None]
  - Vomiting [None]
  - Abdominal pain [None]
  - Flatulence [None]
  - Abdominal distension [None]
  - Weight increased [None]
  - Sinus disorder [None]
  - Proctalgia [None]
  - Drug ineffective [None]
